FAERS Safety Report 6489580-2 (Version None)
Quarter: 2009Q4

REPORT INFORMATION
  Report Type: 
  Country: None (occurrence: None)
  Receive Date: 20091210
  Receipt Date: 20091130
  Transmission Date: 20100525
  Serious: Yes (Hospitalization)
  Sender: FDA-Public Use
  Company Number: IN-ABBOTT-09P-078-0611534-00

PATIENT
  Age: 24 Year
  Sex: Female

DRUGS (1)
  1. KALETRA [Suspect]
     Indication: PROPHYLAXIS AGAINST HIV INFECTION
     Route: 048
     Dates: start: 20090814

REACTIONS (1)
  - PREGNANCY INDUCED HYPERTENSION [None]
